FAERS Safety Report 25876617 (Version 1)
Quarter: 2025Q4

REPORT INFORMATION
  Report Type: Spontaneous
  Country: US (occurrence: US)
  Receive Date: 20251003
  Receipt Date: 20251003
  Transmission Date: 20260118
  Serious: No
  Sender: SANOFI AVENTIS
  Company Number: US-SA-2025SA292988

PATIENT
  Age: 78 Year
  Sex: Female

DRUGS (1)
  1. DUPIXENT [Suspect]
     Active Substance: DUPILUMAB
     Dosage: UNK UNK, QOW
     Route: 030
     Dates: start: 20250901

REACTIONS (4)
  - Dry skin [Recovering/Resolving]
  - Pruritus [Recovering/Resolving]
  - Eye swelling [Recovering/Resolving]
  - Incorrect route of product administration [Unknown]

NARRATIVE: CASE EVENT DATE: 20250901
